FAERS Safety Report 9831510 (Version 2)
Quarter: 2014Q1

REPORT INFORMATION
  Report Type: Spontaneous
  Country: CN (occurrence: CN)
  Receive Date: 20140121
  Receipt Date: 20140131
  Transmission Date: 20141002
  Serious: Yes (Hospitalization)
  Sender: FDA-Public Use
  Company Number: CN-009507513-1401CHN009035

PATIENT
  Age: 49 Year
  Sex: Male
  Weight: 56 kg

DRUGS (8)
  1. GASTER [Suspect]
     Indication: PROPHYLAXIS
     Dosage: 20 MG, BID
     Route: 048
     Dates: start: 20131129
  2. ADVAGRAF [Suspect]
     Indication: PROPHYLAXIS AGAINST TRANSPLANT REJECTION
     Dosage: 8 MG, UID/QD
     Route: 048
     Dates: end: 20140105
  3. ADVAGRAF [Suspect]
     Dosage: 6 MG UID/QD
     Route: 048
     Dates: start: 20140106
  4. ATG-FRENSENIUS S [Suspect]
     Indication: IMMUNOSUPPRESSION
     Dosage: 400 MG UID/QD
     Route: 042
     Dates: start: 20131129, end: 20131129
  5. CELLCEPT [Suspect]
     Indication: PROPHYLAXIS AGAINST TRANSPLANT REJECTION
     Dosage: 750 MG, Q12H,
     Route: 048
     Dates: start: 20131129
  6. PREDNISONE [Concomitant]
     Dosage: UNK
     Route: 048
     Dates: start: 20131223
  7. SULFAMETHOXAZOLE [Concomitant]
     Dosage: UNK
     Route: 048
     Dates: start: 20131211
  8. METHYLPREDNISOLONE [Concomitant]
     Indication: PROPHYLAXIS AGAINST TRANSPLANT REJECTION
     Dosage: 500 MG, QD, FOR 3 DAYS

REACTIONS (1)
  - Drug-induced liver injury [Recovered/Resolved]
